FAERS Safety Report 5134186-0 (Version None)
Quarter: 2006Q4

REPORT INFORMATION
  Report Type: 
  Country: None (occurrence: None)
  Receive Date: 20061024
  Receipt Date: 20061016
  Transmission Date: 20070319
  Serious: Yes (Hospitalization)
  Sender: FDA-Public Use
  Company Number: US-ABBOTT-06P-163-0347139-00

PATIENT
  Sex: Female
  Weight: 96 kg

DRUGS (3)
  1. DEPAKOTE ER [Suspect]
     Indication: BIPOLAR DISORDER
     Route: 048
     Dates: start: 20060808, end: 20060928
  2. LITHIUM CARBONATE [Concomitant]
     Indication: BIPOLAR DISORDER
     Route: 048
     Dates: start: 20061004
  3. LEVOTHYROXINE SODIUM [Concomitant]
     Indication: HYPOTHYROIDISM
     Route: 048
     Dates: start: 20010101

REACTIONS (9)
  - BACK PAIN [None]
  - CHOLELITHIASIS [None]
  - CHROMATURIA [None]
  - COAGULOPATHY [None]
  - FAECES PALE [None]
  - HEPATITIS [None]
  - JAUNDICE [None]
  - MUSCULOSKELETAL CHEST PAIN [None]
  - PRURITUS [None]
